FAERS Safety Report 5818841-2 (Version None)
Quarter: 2008Q3

REPORT INFORMATION
  Report Type: 
  Country: None (occurrence: None)
  Receive Date: 20080723
  Receipt Date: 20080721
  Transmission Date: 20090109
  Serious: Yes (Other)
  Sender: FDA-Public Use
  Company Number: GB-BRISTOL-MYERS SQUIBB COMPANY-14269559

PATIENT
  Age: 80 Year
  Sex: Female

DRUGS (6)
  1. PRAVASTATIN SODIUM [Interacting]
     Indication: HYPERCHOLESTEROLAEMIA
  2. ATENOLOL [Suspect]
  3. AMITRIPTYLINE HCL [Interacting]
     Indication: DEPRESSION
  4. ASPIRIN [Suspect]
  5. LEVOTHYROXINE SODIUM [Suspect]
  6. ARTHROTEC [Suspect]

REACTIONS (2)
  - COLITIS [None]
  - DRUG INTERACTION [None]
